FAERS Safety Report 5776829-4 (Version None)
Quarter: 2008Q2

REPORT INFORMATION
  Report Type: 
  Country: None (occurrence: None)
  Receive Date: 20080616
  Receipt Date: 20080602
  Transmission Date: 20081010
  Serious: Yes (Other)
  Sender: FDA-Public Use
  Company Number: GXKR2008US05050

PATIENT
  Age: 49 Year
  Sex: Male

DRUGS (5)
  1. PREDNISONE [Suspect]
     Indication: PEMPHIGUS
     Dosage: SEE IMAGE
     Route: 048
  2. METHOTREXATE [Suspect]
     Indication: PEMPHIGUS
     Dosage: 7.5 MG, QW, IN 3 DIVIDED DOSES (5, 5, 2.5 MG), ORAL; 12.5 MG, QW, ORAL
     Route: 048
  3. TRIAMCINOLONE [Concomitant]
  4. RITUXAN [Concomitant]
  5. DAPSONE [Suspect]
     Indication: PEMPHIGUS
     Dosage: 50 MG/DAY

REACTIONS (6)
  - BLISTER [None]
  - CRYOTHERAPY [None]
  - GENITAL DISORDER MALE [None]
  - INFUSION RELATED REACTION [None]
  - KAPOSI'S SARCOMA [None]
  - SKIN HYPERTROPHY [None]
